FAERS Safety Report 23445144 (Version 1)
Quarter: 2024Q1

REPORT INFORMATION
  Report Type: Spontaneous
  Country: US (occurrence: US)
  Receive Date: 20240125
  Receipt Date: 20240125
  Transmission Date: 20240410
  Serious: No
  Sender: FDA-Public Use
  Company Number: US-ABBVIE-5598074

PATIENT
  Age: 36 Year
  Sex: Female

DRUGS (1)
  1. HUMIRA [Suspect]
     Active Substance: ADALIMUMAB
     Indication: Hidradenitis
     Dosage: UNKNOWN?FREQUENCY TEXT: UNKNOWN?STOP DATE TEXT: UNKNOWN
     Route: 058
     Dates: start: 202307

REACTIONS (1)
  - Maternal exposure during pregnancy [Unknown]
